FAERS Safety Report 7777210-9 (Version None)
Quarter: 2011Q3

REPORT INFORMATION
  Report Type: 
  Country: None (occurrence: None)
  Receive Date: 20110926
  Receipt Date: 20110915
  Transmission Date: 20111222
  Serious: Yes (Other)
  Sender: FDA-Public Use
  Company Number: ES-JNJFOC-20110906549

PATIENT
  Sex: Male

DRUGS (2)
  1. RISPERDAL CONSTA [Suspect]
     Indication: SCHIZOPHRENIA
     Route: 030
     Dates: start: 20110901
  2. RISPERIDONE [Suspect]
     Indication: SCHIZOPHRENIA
     Dosage: DURING 3 YEARS.
     Route: 048

REACTIONS (2)
  - CEREBRAL ARTERIOSCLEROSIS [None]
  - INJECTION SITE PAIN [None]
